FAERS Safety Report 12787519 (Version 4)
Quarter: 2016Q4

REPORT INFORMATION
  Report Type: Spontaneous
  Country: US (occurrence: US)
  Receive Date: 20160928
  Receipt Date: 20161222
  Transmission Date: 20170207
  Serious: Yes (Death, Hospitalization, Other)
  Sender: FDA-Public Use
  Company Number: US-GLAXOSMITHKLINE-US2016140897

PATIENT
  Age: 78 Year
  Sex: Female

DRUGS (3)
  1. COREG CR [Suspect]
     Active Substance: CARVEDILOL PHOSPHATE
     Indication: BLOOD PRESSURE ABNORMAL
     Dosage: 80 MG, 1D
     Route: 048
  2. MORPHINE [Concomitant]
     Active Substance: MORPHINE
  3. MIRALAX [Concomitant]
     Active Substance: POLYETHYLENE GLYCOL 3350

REACTIONS (6)
  - Breast cancer metastatic [Fatal]
  - Dysphagia [Unknown]
  - Metastasis [Unknown]
  - Bone cancer [Fatal]
  - Breast cancer recurrent [Unknown]
  - Breast cancer [Unknown]

NARRATIVE: CASE EVENT DATE: 20160701
